FAERS Safety Report 4591564-6 (Version None)
Quarter: 2005Q1

REPORT INFORMATION
  Report Type: 
  Country: None (occurrence: None)
  Receive Date: 20050223
  Receipt Date: 20050223
  Transmission Date: 20050727
  Serious: Yes (Other)
  Sender: FDA-Public Use
  Company Number: None

PATIENT
  Age: 46 Year
  Sex: Male
  Weight: 63.5036 kg

DRUGS (1)
  1. GABAPENTIN [Suspect]
     Indication: BACK PAIN
     Dosage: ONE CAPSULE THREE TIMES A DAY
     Dates: start: 20050214, end: 20050315

REACTIONS (3)
  - CHEST DISCOMFORT [None]
  - DIARRHOEA [None]
  - NASAL CONGESTION [None]
